FAERS Safety Report 4529598-X (Version None)
Quarter: 2004Q4

REPORT INFORMATION
  Report Type: 
  Country: None (occurrence: None)
  Receive Date: 20041216
  Receipt Date: 20041209
  Transmission Date: 20050328
  Serious: Yes (Life-Threatening, Hospitalization, Disabling)
  Sender: FDA-Public Use
  Company Number: US-MERCK-0412USA01177

PATIENT
  Age: 74 Year
  Sex: Female

DRUGS (5)
  1. VIOXX [Suspect]
     Indication: ARTHRITIS
     Route: 048
     Dates: start: 20020518, end: 20040930
  2. TENORMIN [Concomitant]
     Route: 065
  3. LIPITOR [Concomitant]
     Route: 065
  4. DIOVAN [Concomitant]
     Route: 065
  5. ASPIRIN [Concomitant]
     Route: 065

REACTIONS (1)
  - ANTERIOR SPINAL ARTERY SYNDROME [None]
